FAERS Safety Report 9337141 (Version 1)
Quarter: 2013Q2

REPORT INFORMATION
  Report Type: Spontaneous
  Country: US (occurrence: US)
  Receive Date: 20130607
  Receipt Date: 20130607
  Transmission Date: 20140414
  Serious: Yes (Other)
  Sender: FDA-Public Use
  Company Number: US-TEVA-410000USA

PATIENT
  Sex: Female

DRUGS (1)
  1. PHENTERMINE [Suspect]
     Indication: SYMPATHOMIMETIC EFFECT
     Dates: start: 1995

REACTIONS (6)
  - Muscle rupture [Unknown]
  - Diabetes mellitus [Unknown]
  - Overweight [Unknown]
  - Arthropathy [Unknown]
  - Back disorder [Unknown]
  - Feeling abnormal [Unknown]
